FAERS Safety Report 4456357-9 (Version None)
Quarter: 2004Q3

REPORT INFORMATION
  Report Type: 
  Country: None (occurrence: None)
  Receive Date: 20040917
  Receipt Date: 20040914
  Transmission Date: 20050211
  Serious: Yes (Hospitalization)
  Sender: FDA-Public Use
  Company Number: 203418

PATIENT
  Sex: Male

DRUGS (1)
  1. XOLAIR [Suspect]

REACTIONS (2)
  - ALCOHOL USE [None]
  - CONFUSIONAL STATE [None]
